FAERS Safety Report 8334897 (Version 6)
Quarter: 2012Q4

REPORT INFORMATION
  Report Type: 
  Country: JP (occurrence: JP)
  Receive Date: 20120112
  Receipt Date: 20121016
  Transmission Date: 20130627
  Serious: Yes (Hospitalization)
  Sender: FDA-Public Use
  Company Number: JP-GLAXOSMITHKLINE-B0774554A

PATIENT
  Age: 38 Year
  Sex: Female

DRUGS (8)
  1. LAMICTAL [Suspect]
     Indication: PRODUCT USED FOR UNKNOWN INDICATION
     Dosage: 25MG Alternate days
     Route: 048
     Dates: start: 20110906, end: 20110919
  2. LAMICTAL [Suspect]
     Indication: PRODUCT USED FOR UNKNOWN INDICATION
     Dosage: 25MG Per day
     Route: 048
     Dates: start: 20110920, end: 20111010
  3. LAMICTAL [Suspect]
     Indication: PRODUCT USED FOR UNKNOWN INDICATION
     Dosage: 50MG Per day
     Route: 048
     Dates: start: 20111011, end: 20111024
  4. LAMICTAL [Suspect]
     Indication: PRODUCT USED FOR UNKNOWN INDICATION
     Dosage: 75MG Per day
     Route: 048
     Dates: start: 20111025, end: 20111107
  5. LAMICTAL [Suspect]
     Indication: PRODUCT USED FOR UNKNOWN INDICATION
     Dosage: 100MG Per day
     Route: 048
     Dates: start: 20111108, end: 20111121
  6. LAMICTAL [Suspect]
     Indication: PRODUCT USED FOR UNKNOWN INDICATION
     Dosage: 125MG Per day
     Route: 048
     Dates: start: 20111122, end: 20111128
  7. LAMICTAL [Suspect]
     Indication: PRODUCT USED FOR UNKNOWN INDICATION
     Dosage: 150MG Per day
     Route: 048
     Dates: start: 20111129, end: 20111213
  8. SODIUM VALPROATE [Concomitant]
     Route: 048

REACTIONS (12)
  - Drug reaction with eosinophilia and systemic symptoms [Unknown]
  - Pyrexia [Unknown]
  - Arthralgia [Unknown]
  - Oropharyngeal pain [Unknown]
  - Erythema [Unknown]
  - Rash [Recovering/Resolving]
  - Pain in extremity [Unknown]
  - Back pain [Unknown]
  - Renal impairment [Unknown]
  - Hepatic function abnormal [Unknown]
  - Pancreatic insufficiency [Unknown]
  - Skin disorder [Unknown]
